FAERS Safety Report 8450710-4 (Version None)
Quarter: 2012Q2

REPORT INFORMATION
  Report Type: 
  Country: None (occurrence: None)
  Receive Date: 20120620
  Receipt Date: 20120614
  Transmission Date: 20120825
  Serious: Yes (Other)
  Sender: FDA-Public Use
  Company Number: FI-PFIZER INC-2012143084

PATIENT
  Age: 55 Year

DRUGS (5)
  1. LYRICA [Suspect]
     Indication: INTERVERTEBRAL DISC PROTRUSION
     Dosage: 25 MG, 1X/DAY
     Route: 048
     Dates: start: 20120529, end: 20120529
  2. LYRICA [Suspect]
     Dosage: 50 MG, 1X/DAY
     Route: 048
     Dates: start: 20120530, end: 20120530
  3. LYRICA [Suspect]
     Dosage: 75 MG, 1X/DAY
     Route: 048
     Dates: start: 20120531, end: 20120605
  4. IBUPROFEN [Concomitant]
     Indication: NECK PAIN
     Dosage: 600 MG, 3X/DAY
     Route: 048
  5. IBUPROFEN [Concomitant]
     Indication: MUSCULOSKELETAL PAIN

REACTIONS (3)
  - BREAST SWELLING [None]
  - BREAST ABSCESS [None]
  - AXILLARY PAIN [None]
